FAERS Safety Report 21178723 (Version 1)
Quarter: 2022Q3

REPORT INFORMATION
  Report Type: Report from Study
  Country: US (occurrence: US)
  Receive Date: 20220805
  Receipt Date: 20220805
  Transmission Date: 20221026
  Serious: Yes (Other)
  Sender: FDA-Public Use
  Company Number: US-JAZZ-2022-US-020726

PATIENT
  Sex: Female

DRUGS (33)
  1. XYREM [Suspect]
     Active Substance: SODIUM OXYBATE
     Indication: Narcolepsy
  2. XYREM [Suspect]
     Active Substance: SODIUM OXYBATE
     Indication: Cataplexy
  3. XYREM [Suspect]
     Active Substance: SODIUM OXYBATE
     Indication: Somnolence
  4. NASCOBAL [Concomitant]
     Active Substance: CYANOCOBALAMIN
     Dosage: 0000
     Dates: start: 20151002
  5. SEASONIQUE [Concomitant]
     Active Substance: ETHINYL ESTRADIOL\LEVONORGESTREL
     Dosage: 0.15-0.03-0.01
     Dates: start: 20151116
  6. CYMBALTA [Concomitant]
     Active Substance: DULOXETINE HYDROCHLORIDE
     Dosage: 0000
     Dates: start: 20151116
  7. ONDANSETRON [Concomitant]
     Active Substance: ONDANSETRON
     Dosage: 0000
     Dates: start: 20151116
  8. ZIPSOR [Concomitant]
     Active Substance: DICLOFENAC POTASSIUM
     Dosage: 0010
     Dates: start: 20151116
  9. GABAPENTIN [Concomitant]
     Active Substance: GABAPENTIN
     Dosage: 0010
     Dates: start: 20170324
  10. PROBIOTIC ACIDOPHILUS [LACTOBACILLUS ACIDOPHILUS] [Concomitant]
     Dosage: 0000
     Dates: start: 20170315
  11. ASCORBIC ACID [Concomitant]
     Active Substance: ASCORBIC ACID
     Dosage: 0000
     Dates: start: 20161101
  12. .ALPHA.-TOCOPHEROL [Concomitant]
     Active Substance: .ALPHA.-TOCOPHEROL
     Dosage: 100 UNIT
     Dates: start: 20161101
  13. IMITREX [Concomitant]
     Active Substance: SUMATRIPTAN SUCCINATE
     Dosage: 0000
     Dates: start: 20180128
  14. TIZANIDINE HYDROCHLORIDE [Concomitant]
     Active Substance: TIZANIDINE HYDROCHLORIDE
     Dosage: 0000
     Dates: start: 20180318
  15. MAGNESIUM [Concomitant]
     Active Substance: MAGNESIUM
     Dosage: 0000
     Dates: start: 20181019
  16. HYDROXYCHLOROQUINE [Concomitant]
     Active Substance: HYDROXYCHLOROQUINE
     Dosage: 0000
     Dates: start: 20190226
  17. LIOTHYRONINE SODIUM [Concomitant]
     Active Substance: LIOTHYRONINE SODIUM
     Dosage: 0000
     Dates: start: 20190102
  18. SYNTHROID [Concomitant]
     Active Substance: LEVOTHYROXINE SODIUM
     Dosage: 0000
     Dates: start: 20200121
  19. ONDANSETRON HCL [Concomitant]
     Active Substance: ONDANSETRON HYDROCHLORIDE
     Dosage: 0000
     Dates: start: 20200301
  20. NARCAN [Concomitant]
     Active Substance: NALOXONE HYDROCHLORIDE
     Dosage: 0000
     Dates: start: 20210615
  21. POTASSIUM GLUCONATE [Concomitant]
     Active Substance: POTASSIUM GLUCONATE
     Dosage: 0000
     Dates: start: 20210611
  22. CEFUROXIME AXETIL [Concomitant]
     Active Substance: CEFUROXIME AXETIL
     Dosage: 0000
     Dates: start: 20210609
  23. LORAZEPAM [Concomitant]
     Active Substance: LORAZEPAM
     Dosage: 0000
     Dates: start: 20210611
  24. VITAMIN D3 [Concomitant]
     Active Substance: CHOLECALCIFEROL
     Dosage: 0000
     Dates: start: 20210611
  25. OXITRIPTAN [Concomitant]
     Active Substance: OXITRIPTAN
     Dosage: 0000
     Dates: start: 20210126
  26. TESTOSTERONE [Concomitant]
     Active Substance: TESTOSTERONE
     Dosage: 0000
     Dates: start: 20210126
  27. ADDERALL [Concomitant]
     Active Substance: AMPHETAMINE ASPARTATE\AMPHETAMINE SULFATE\DEXTROAMPHETAMINE SACCHARATE\DEXTROAMPHETAMINE SULFATE
     Dosage: 0000
     Dates: start: 20210727
  28. HYDROCHLOROTHIAZIDE [Concomitant]
     Active Substance: HYDROCHLOROTHIAZIDE
     Dosage: 0000
     Dates: start: 20220505
  29. WELLBUTRIN XL [Concomitant]
     Active Substance: BUPROPION HYDROCHLORIDE
     Dosage: 0000
     Dates: start: 20220505
  30. DIAZEPAM [Concomitant]
     Active Substance: DIAZEPAM
     Dosage: 0000
     Dates: start: 20220503
  31. TINIDAZOLE [Concomitant]
     Active Substance: TINIDAZOLE
     Dosage: 0000
     Dates: start: 20220505
  32. PROGESTERONE [Concomitant]
     Active Substance: PROGESTERONE
     Dosage: UNK
     Dates: start: 20210126
  33. ESTROGENS [Concomitant]
     Active Substance: ESTROGENS
     Dosage: UNK
     Dates: start: 20210126

REACTIONS (4)
  - Benign lung neoplasm [Unknown]
  - Dry eye [Unknown]
  - Thoracic outlet syndrome [Unknown]
  - Product dose omission issue [Unknown]
